FAERS Safety Report 9253987 (Version 2)
Quarter: 2013Q3

REPORT INFORMATION
  Report Type: Spontaneous
  Country: US (occurrence: US)
  Receive Date: 20130425
  Receipt Date: 20130705
  Transmission Date: 20140515
  Serious: Yes (Hospitalization, Disabling, Other)
  Sender: FDA-Public Use
  Company Number: US-ASTRAZENECA-2013SE27386

PATIENT
  Age: 54 Year
  Sex: Female
  Weight: 85.3 kg

DRUGS (18)
  1. NEXIUM [Suspect]
     Route: 048
  2. PRILOSEC OTC [Suspect]
     Indication: GASTROOESOPHAGEAL REFLUX DISEASE
     Dosage: 2-3 TIMES WEEKLY
     Route: 048
     Dates: start: 2005, end: 2012
  3. OMEPRAZOLE [Suspect]
     Indication: GASTROOESOPHAGEAL REFLUX DISEASE
     Route: 048
     Dates: start: 2008
  4. OMEPRAZOLE [Suspect]
     Indication: GASTROOESOPHAGEAL REFLUX DISEASE
     Route: 048
     Dates: start: 200908
  5. OMEPRAZOLE [Suspect]
     Indication: GASTROOESOPHAGEAL REFLUX DISEASE
     Route: 048
     Dates: start: 20111117
  6. ZANTAC [Concomitant]
     Dates: start: 2012, end: 2013
  7. TUMS [Concomitant]
     Indication: REFLUX GASTRITIS
  8. DOXAZOSIN [Concomitant]
     Indication: BLOOD PRESSURE
  9. ALLOPURINOL [Concomitant]
     Indication: GOUT
  10. NEFEDIPIN [Concomitant]
     Indication: BLOOD PRESSURE
  11. LOSARTAN POTASSIUM [Concomitant]
     Indication: BLOOD PRESSURE
  12. ARMOUR THYROID [Concomitant]
     Indication: HYPOTHYROIDISM
  13. FLUTICASONE [Concomitant]
     Indication: HYPERSENSITIVITY
  14. Z PAC [Concomitant]
     Indication: SINUSITIS
  15. PEPTO-BISMOL [Concomitant]
  16. PREDNISONE [Concomitant]
     Route: 048
     Dates: start: 20120903
  17. PROGESTERONE [Concomitant]
     Route: 048
     Dates: start: 20100409
  18. PROTONIX [Concomitant]
     Route: 048
     Dates: start: 20111212

REACTIONS (11)
  - Osteoarthritis [Unknown]
  - Bone density decreased [Unknown]
  - Osteoporosis [Unknown]
  - Arthritis [Unknown]
  - Bone pain [Unknown]
  - Calcium deficiency [Unknown]
  - Foot fracture [Unknown]
  - Gout [Unknown]
  - Hypothyroidism [Unknown]
  - Pain in extremity [Unknown]
  - Vitamin D deficiency [Unknown]
